FAERS Safety Report 11206081 (Version 3)
Quarter: 2015Q4

REPORT INFORMATION
  Report Type: Report from Study
  Country: US (occurrence: US)
  Receive Date: 20150622
  Receipt Date: 20151117
  Transmission Date: 20160304
  Serious: Yes (Other)
  Sender: FDA-Public Use
  Company Number: US-ALEXION PHARMACEUTICALS INC.-A201502202

PATIENT
  Sex: Male

DRUGS (3)
  1. SOLIRIS [Suspect]
     Active Substance: ECULIZUMAB
     Dosage: UNK, Q3W
     Route: 042
     Dates: start: 20150601
  2. SOLIRIS [Suspect]
     Active Substance: ECULIZUMAB
     Indication: HAEMOLYTIC URAEMIC SYNDROME
     Dosage: 1200 MG, UNK
     Route: 042
     Dates: start: 20140307, end: 20151030
  3. SOLIRIS [Suspect]
     Active Substance: ECULIZUMAB
     Dosage: UNK, Q4W
     Route: 042
     Dates: end: 20150601

REACTIONS (6)
  - Incision site vesicles [Unknown]
  - Dry skin [Unknown]
  - Arthropathy [Unknown]
  - Impaired healing [Unknown]
  - Platelet count decreased [Unknown]
  - Wound [Unknown]

NARRATIVE: CASE EVENT DATE: 2015
